FAERS Safety Report 12898436 (Version 1)
Quarter: 2016Q4

REPORT INFORMATION
  Report Type: Spontaneous
  Country: FR (occurrence: FR)
  Receive Date: 20161031
  Receipt Date: 20161031
  Transmission Date: 20170207
  Serious: Yes (Death, Congenital Anomaly, Other)
  Sender: FDA-Public Use
  Company Number: FR-ABBVIE-16P-056-1767782-00

PATIENT
  Sex: Female

DRUGS (1)
  1. MICROPAKINE [Suspect]
     Active Substance: VALPROIC ACID
     Indication: MATERNAL EXPOSURE TIMING UNSPECIFIED
     Route: 064

REACTIONS (9)
  - Foetal growth restriction [Fatal]
  - Congenital hand malformation [Fatal]
  - Foetal exposure during pregnancy [Unknown]
  - Atrial septal defect [Fatal]
  - Jugular vein distension [Fatal]
  - Ventricular septal defect [Fatal]
  - Spina bifida [Fatal]
  - Single umbilical artery [Fatal]
  - Pulmonary artery atresia [Fatal]

NARRATIVE: CASE EVENT DATE: 2014
